FAERS Safety Report 12850410 (Version 1)
Quarter: 2016Q4

REPORT INFORMATION
  Report Type: Spontaneous
  Country: US (occurrence: US)
  Receive Date: 20161014
  Receipt Date: 20161014
  Transmission Date: 20170207
  Serious: Yes (Other)
  Sender: FDA-Public Use
  Company Number: US-MALLINCKRODT-T201605009

PATIENT
  Age: 83 Year
  Sex: Male
  Weight: 98 kg

DRUGS (8)
  1. ROXICODONE [Suspect]
     Active Substance: OXYCODONE HYDROCHLORIDE
     Indication: PAIN
     Dosage: 5 MG, PRN
     Route: 048
  2. NORMODYNE [Suspect]
     Active Substance: LABETALOL HYDROCHLORIDE
     Indication: PRODUCT USED FOR UNKNOWN INDICATION
     Dosage: 100 MG, BID
     Route: 048
  3. PRADAXA [Suspect]
     Active Substance: DABIGATRAN ETEXILATE MESYLATE
     Indication: ATRIAL FIBRILLATION
     Route: 065
  4. ALDACTONE [Suspect]
     Active Substance: SPIRONOLACTONE
     Indication: PRODUCT USED FOR UNKNOWN INDICATION
     Dosage: 25 MG
     Route: 065
  5. ZYLOPRIM [Suspect]
     Active Substance: ALLOPURINOL
     Indication: PRODUCT USED FOR UNKNOWN INDICATION
     Dosage: 100 MG
     Route: 065
  6. MIRAPEX [Suspect]
     Active Substance: PRAMIPEXOLE DIHYDROCHLORIDE
     Indication: PRODUCT USED FOR UNKNOWN INDICATION
     Dosage: 0.25 MG, TID
     Route: 048
  7. KLOR-CON [Suspect]
     Active Substance: POTASSIUM CHLORIDE
     Indication: PRODUCT USED FOR UNKNOWN INDICATION
     Dosage: 20 MEQ, BID
     Route: 048
  8. BUMEX [Suspect]
     Active Substance: BUMETANIDE
     Indication: PRODUCT USED FOR UNKNOWN INDICATION
     Dosage: 2 MG, QD
     Route: 048

REACTIONS (16)
  - Ischaemia [Unknown]
  - Renal impairment [Unknown]
  - Anxiety [Unknown]
  - Pickwickian syndrome [Unknown]
  - Chest discomfort [Unknown]
  - Pollakiuria [Unknown]
  - Respiratory disorder [Unknown]
  - Fatigue [Unknown]
  - Nervousness [Unknown]
  - Plasma cell myeloma [Unknown]
  - Dyspnoea [Unknown]
  - Cardiac murmur [Unknown]
  - Diaphragmatic disorder [Unknown]
  - Oedema peripheral [Unknown]
  - Cardiac amyloidosis [Unknown]
  - Overlap syndrome [Unknown]

NARRATIVE: CASE EVENT DATE: 201609
